FAERS Safety Report 9445009 (Version 2)
Quarter: 2013Q4

REPORT INFORMATION
  Report Type: Report from Study
  Country: FR (occurrence: FR)
  Receive Date: 20130807
  Receipt Date: 20131001
  Transmission Date: 20140711
  Serious: Yes (Death, Hospitalization)
  Sender: FDA-Public Use
  Company Number: FR-CELGENEUS-056-50794-13064082

PATIENT
  Age: 70 Year
  Sex: Male
  Weight: 84 kg

DRUGS (13)
  1. VIDAZA [Suspect]
     Indication: MYELODYSPLASTIC SYNDROME
     Dosage: 75 MILLIGRAM/SQ. METER
     Route: 058
     Dates: start: 20130603, end: 20130609
  2. IDARUBICIN [Suspect]
     Indication: MYELODYSPLASTIC SYNDROME
     Dosage: 10 MILLIGRAM/SQ. METER
     Route: 041
     Dates: start: 20130610, end: 20130610
  3. AUGMENTIN [Concomitant]
     Indication: PYREXIA
     Route: 048
     Dates: start: 20130617, end: 20130619
  4. SPIRONOLACTONE [Concomitant]
     Indication: HYPERTENSION
     Dosage: 1 TABLET
     Route: 048
  5. LAROXYL [Concomitant]
     Indication: DEPRESSION
     Dosage: 8 DROPS
     Route: 048
  6. SERETID [Concomitant]
     Indication: ASTHMA
     Dosage: 250 NANOGRAM
     Route: 048
     Dates: start: 1962
  7. SINGULAIR [Concomitant]
     Indication: ASTHMA
     Dosage: 10 MILLIGRAM
     Route: 048
     Dates: start: 1962
  8. TOCOPHEROL [Concomitant]
     Indication: VITAMIN K DEFICIENCY
     Dosage: 500 MILLIGRAM
     Route: 048
  9. METEOSPASMYL [Concomitant]
     Indication: ABDOMINAL DISTENSION
     Dosage: 3 TABLET
     Route: 048
     Dates: start: 20130402
  10. LYRICA [Concomitant]
     Indication: BACK PAIN
     Dosage: 150 MILLIGRAM
     Route: 048
     Dates: start: 20130402
  11. DOLIPRANE [Concomitant]
     Indication: PAIN
     Dosage: 3 GRAM
     Route: 048
     Dates: start: 20130402
  12. DOLIPRANE [Concomitant]
     Dosage: 3 GRAM
     Route: 041
     Dates: start: 20130708, end: 20130708
  13. MACROGOL [Concomitant]
     Indication: CONSTIPATION
     Dosage: 1 DOSAGE FORMS
     Route: 048
     Dates: start: 20130402

REACTIONS (2)
  - General physical health deterioration [Fatal]
  - Anorectal cellulitis [Recovered/Resolved]
